FAERS Safety Report 23551266 (Version 1)
Quarter: 2024Q1

REPORT INFORMATION
  Report Type: Spontaneous
  Country: US (occurrence: US)
  Receive Date: 20240222
  Receipt Date: 20240222
  Transmission Date: 20240409
  Serious: Yes (Other)
  Sender: FDA-Public Use
  Company Number: US-CADILA HEALTHCARE LIMITED-US-ZYDUS-103368

PATIENT

DRUGS (2)
  1. PROCHLORPERAZINE [Suspect]
     Active Substance: PROCHLORPERAZINE
     Indication: Vomiting
     Dosage: UNK
     Route: 065
  2. METOCLOPRAMIDE [Suspect]
     Active Substance: METOCLOPRAMIDE
     Indication: Vomiting
     Dosage: UNK, FOR APPROXIMATELY 3 MONTHS
     Route: 065

REACTIONS (3)
  - Amnesia [Recovered/Resolved]
  - Hypometabolism [Recovering/Resolving]
  - Tardive dyskinesia [Recovered/Resolved]
